FAERS Safety Report 6154732-8 (Version None)
Quarter: 2009Q2

REPORT INFORMATION
  Report Type: 
  Country: None (occurrence: None)
  Receive Date: 20090414
  Receipt Date: 20090406
  Transmission Date: 20091009
  Serious: Yes (Congenital Anomaly)
  Sender: FDA-Public Use
  Company Number: B0568625A

PATIENT
  Age: 12 Week
  Sex: Male

DRUGS (7)
  1. AMOXICILLIN [Suspect]
     Dosage: 750MG PER DAY
     Dates: start: 20080707
  2. QUETIAPINE [Suspect]
     Indication: BIPOLAR DISORDER
     Dates: start: 20080421, end: 20080616
  3. REBOXETINE [Suspect]
     Indication: BIPOLAR DISORDER
     Dates: start: 20050101, end: 20080529
  4. VENLAFAXINE HCL [Suspect]
     Indication: BIPOLAR DISORDER
     Dates: start: 20050624
  5. PRIADEL [Suspect]
     Indication: BIPOLAR DISORDER
     Dates: start: 20050101
  6. CODEINE [Suspect]
  7. FERROUS SULFATE TAB [Suspect]
     Dosage: 400MG PER DAY
     Dates: start: 20081006

REACTIONS (3)
  - CONGENITAL ANOMALY [None]
  - DRUG EXPOSURE DURING PREGNANCY [None]
  - PIERRE ROBIN SYNDROME [None]
